FAERS Safety Report 9571456 (Version 1)
Quarter: 2013Q1

REPORT INFORMATION
  Report Type: Spontaneous
  Country: US (occurrence: None)
  Receive Date: 20120709
  Receipt Date: 20120709
  Transmission Date: 20140127
  Serious: Yes (Other)
  Sender: FDA-Public Use
  Company Number: 2012HGS-003446

PATIENT
  Age: 44 Year
  Sex: Female
  Weight: 128.82 kg

DRUGS (18)
  1. BENLYSTA [Suspect]
     Indication: SYSTEMIC LUPUS ERYTHEMATOSUS
     Dosage: INTRAVENOUS DRIP
     Route: 041
     Dates: start: 20120322, end: 20120322
  2. BENZONATATE (BENZONATATE) (BENZONATATE) [Concomitant]
  3. NEURONTIN (GABAPENTIN) (GABAPENTIN) [Concomitant]
  4. EFFEXOR SR (VENLAFAXINE HYDROCHLORIDE) (VENLAFAXINE)? [Concomitant]
  5. VERAPAMIL SR (VERAPAMIL) (VERAPAMIL) [Concomitant]
  6. SINGULAIR [Concomitant]
  7. XANAX (ALPRAZOLAM) (ALPRAZOLAM) [Concomitant]
  8. MELATONIN (MELATONIN) (MELATONIN) [Concomitant]
  9. ERGOCALCIFEROL (ERGOCALCIFEROL) (ERGOCALCIFEROL)? [Concomitant]
  10. TOPAMAX (TOPIRAMATE) (TOPIRAMATE) [Concomitant]
  11. SYMBICORT (BUDESONIDE W/ FORMOTEROL FUMARATE) (FORMOTEROL FUMARATE, BUDESONIDE)? [Concomitant]
  12. PLAQUENIL (HYDROXYCHLOROQUINE SULFATE) (HYDROXYCHLOROQUINE SULFATE) [Concomitant]
  13. METHOTREXATE(METHOTREXATE) (METHOTEXATE) [Concomitant]
  14. LAMICTAL (LAMOTRIGINE) (LAMOTRIGINE) [Concomitant]
  15. FLONASE (FLUTICASONE PROPINONATE) (FLUTICASONE PROPIONATE) [Concomitant]
  16. VENTOLIN (SALBUTAMOL) (SALBUTAMOL) [Concomitant]
  17. AMITRIPTYLINE HCL (AMITRIPTYLINE HYDROCHLORIDE) (AMITRIPTYLINE HYDROCHLORIDE) [Concomitant]
  18. PREDNISONE (PREDNISONE) (PREDNISONE) [Concomitant]

REACTIONS (13)
  - Hypersensitivity [None]
  - Swollen tongue [None]
  - Dysarthria [None]
  - Swelling face [None]
  - Oedema peripheral [None]
  - Dyspnoea [None]
  - Blood pressure increased [None]
  - Rash [None]
  - Bronchospasm [None]
  - Urticaria [None]
  - Pruritus [None]
  - Erythema [None]
  - Infusion site pain [None]
